FAERS Safety Report 4284410-1 (Version None)
Quarter: 2004Q1

REPORT INFORMATION
  Report Type: 
  Country: None (occurrence: None)
  Receive Date: 20040130
  Receipt Date: 20040130
  Transmission Date: 20041129
  Serious: Yes (Hospitalization)
  Sender: FDA-Public Use
  Company Number: None

PATIENT
  Age: 67 Year
  Sex: Male
  Weight: 95.9 kg

DRUGS (10)
  1. AMIODARONE HCL [Suspect]
     Indication: CORONARY ARTERY DISEASE
     Dosage: 200 MG DAILY
  2. AMIODARONE HCL [Suspect]
     Indication: MYOCARDIAL INFARCTION
     Dosage: 200 MG DAILY
  3. ASPIRIN [Concomitant]
  4. FOSINOPRIL SODIUM [Concomitant]
  5. FUROSEMIDE [Concomitant]
  6. GLYBURIDE [Concomitant]
  7. METFORMIN HCL [Concomitant]
  8. METOPROLOL [Concomitant]
  9. PREDNISONE [Concomitant]
  10. SIMVASTATIN [Concomitant]

REACTIONS (4)
  - DRUG TOXICITY [None]
  - HYPERTHYROIDISM [None]
  - RENAL FAILURE ACUTE [None]
  - TREMOR [None]
